FAERS Safety Report 4903081-1 (Version None)
Quarter: 2006Q1

REPORT INFORMATION
  Report Type: 
  Country: None (occurrence: None)
  Receive Date: 20060207
  Receipt Date: 20050308
  Transmission Date: 20060701
  Serious: Yes (Hospitalization, Other)
  Sender: FDA-Public Use
  Company Number: US-MERCK-0503USA01397

PATIENT
  Age: 71 Year
  Sex: Female
  Weight: 82 kg

DRUGS (1)
  1. VIOXX [Suspect]
     Indication: ARTHRITIS
     Route: 048

REACTIONS (7)
  - ADVERSE EVENT [None]
  - ANGIOPATHY [None]
  - CARDIAC DISORDER [None]
  - HEART INJURY [None]
  - HEART RATE DECREASED [None]
  - MYOCARDIAL INFARCTION [None]
  - VASCULAR OCCLUSION [None]
